FAERS Safety Report 6085536-2 (Version None)
Quarter: 2009Q1

REPORT INFORMATION
  Report Type: 
  Country: None (occurrence: None)
  Receive Date: 20090217
  Receipt Date: 20080530
  Transmission Date: 20090719
  Serious: Yes (Other)
  Sender: FDA-Public Use
  Company Number: US-WYE-H04350908

PATIENT
  Sex: Female

DRUGS (1)
  1. ALAVERT [Suspect]
     Dosage: ORAL; A WEEK OR SO
     Route: 048

REACTIONS (2)
  - HYPOAESTHESIA ORAL [None]
  - PARAESTHESIA [None]
